FAERS Safety Report 24246654 (Version 3)
Quarter: 2024Q4

REPORT INFORMATION
  Report Type: Report from Study
  Country: CA (occurrence: CA)
  Receive Date: 20240825
  Receipt Date: 20241031
  Transmission Date: 20250114
  Serious: Yes (Hospitalization, Other)
  Sender: CELLTRION
  Company Number: CA-CELLTRION INC.-2024CA020009

PATIENT

DRUGS (5)
  1. YUFLYMA [Suspect]
     Active Substance: ADALIMUMAB-AATY
     Indication: Hidradenitis
     Dosage: 40 MG WEEKLY
     Route: 058
     Dates: start: 20240326
  2. YUFLYMA [Suspect]
     Active Substance: ADALIMUMAB-AATY
     Dosage: 40 MG WEEKLY (RESTARTED)
     Route: 058
     Dates: start: 20240818
  3. OMEPRAZOLE [Concomitant]
     Active Substance: OMEPRAZOLE
     Indication: Dyspepsia
     Dosage: AS NEEDED
  4. TORADOL [Concomitant]
     Active Substance: KETOROLAC TROMETHAMINE
     Indication: Pain
  5. NAPROXEN [Concomitant]
     Active Substance: NAPROXEN
     Indication: Pain

REACTIONS (6)
  - Condition aggravated [Not Recovered/Not Resolved]
  - Hidradenitis [Not Recovered/Not Resolved]
  - Neuralgia [Not Recovered/Not Resolved]
  - Cardiac disorder [Recovering/Resolving]
  - Sweat gland infection [Not Recovered/Not Resolved]
  - Drug effect less than expected [Unknown]

NARRATIVE: CASE EVENT DATE: 20241022
